FAERS Safety Report 9376333 (Version 1)
Quarter: 2013Q3

REPORT INFORMATION
  Report Type: Spontaneous
  Country: US (occurrence: US)
  Receive Date: 20130701
  Receipt Date: 20130701
  Transmission Date: 20140515
  Serious: No
  Sender: FDA-Public Use
  Company Number: US-009507513-1306USA013379

PATIENT
  Age: 38 Year
  Sex: Female

DRUGS (1)
  1. JANUVIA [Suspect]
     Dosage: 20 MG, QD
     Dates: start: 201201

REACTIONS (3)
  - Diarrhoea [Recovered/Resolved]
  - Headache [Recovered/Resolved]
  - Incorrect dose administered [Unknown]
